FAERS Safety Report 16787359 (Version 2)
Quarter: 2019Q3

REPORT INFORMATION
  Report Type: Report from Study
  Country: US (occurrence: US)
  Receive Date: 20190909
  Receipt Date: 20190912
  Transmission Date: 20191005
  Serious: Yes (Other)
  Sender: FDA-Public Use
  Company Number: US-PFIZER INC-2019371339

PATIENT
  Age: 71 Year
  Sex: Male
  Weight: 120 kg

DRUGS (3)
  1. HUMIRA [Suspect]
     Active Substance: ADALIMUMAB
     Indication: RHEUMATOID ARTHRITIS
     Dosage: 40 MILLIGRAM (40MG/0.8ML)
     Route: 058
     Dates: end: 201906
  2. APIXABAN [Suspect]
     Active Substance: APIXABAN
     Dosage: UNK
     Route: 065
  3. IBUPROFEN. [Suspect]
     Active Substance: IBUPROFEN
     Dosage: UNK
     Route: 065

REACTIONS (7)
  - Cellulitis [Recovering/Resolving]
  - Skin haemorrhage [Recovering/Resolving]
  - Thrombosis [Recovered/Resolved]
  - Contusion [Recovering/Resolving]
  - Inflammation [Recovering/Resolving]
  - Cerebrovascular accident [Not Recovered/Not Resolved]
  - Aphasia [Unknown]

NARRATIVE: CASE EVENT DATE: 2011
